FAERS Safety Report 10585547 (Version 2)
Quarter: 2014Q4

REPORT INFORMATION
  Report Type: Spontaneous
  Country: US (occurrence: US)
  Receive Date: 20141114
  Receipt Date: 20141114
  Transmission Date: 20150529
  Serious: Yes (Hospitalization, Other)
  Sender: FDA-Public Use
  Company Number: US-GLAXOSMITHKLINE-A0776204A

PATIENT
  Sex: Male
  Weight: 90 kg

DRUGS (10)
  1. VITAMINS [Concomitant]
     Active Substance: VITAMINS
  2. AVANDIA [Suspect]
     Active Substance: ROSIGLITAZONE MALEATE
     Indication: TYPE 2 DIABETES MELLITUS
     Route: 048
     Dates: start: 200211, end: 200705
  3. HYZAAR [Concomitant]
     Active Substance: HYDROCHLOROTHIAZIDE\LOSARTAN POTASSIUM
  4. GLUCOTROL [Concomitant]
     Active Substance: GLIPIZIDE
     Dates: start: 199808
  5. LESCOL [Concomitant]
     Active Substance: FLUVASTATIN SODIUM
  6. GLIPIZIDE. [Concomitant]
     Active Substance: GLIPIZIDE
  7. BRONCHODILATOR [Concomitant]
     Active Substance: UNSPECIFIED INGREDIENT
  8. SPIRONOLACTONE. [Concomitant]
     Active Substance: SPIRONOLACTONE
  9. PRAVACHOL [Concomitant]
     Active Substance: PRAVASTATIN SODIUM
  10. NORVASC [Concomitant]
     Active Substance: AMLODIPINE BESYLATE

REACTIONS (4)
  - Cardiac failure congestive [Unknown]
  - Myocardial infarction [Not Recovered/Not Resolved]
  - Cardiomyopathy [Unknown]
  - Myocardial ischaemia [Unknown]

NARRATIVE: CASE EVENT DATE: 2005
